FAERS Safety Report 24213839 (Version 1)
Quarter: 2024Q3

REPORT INFORMATION
  Report Type: Spontaneous
  Country: CN (occurrence: CN)
  Receive Date: 20240815
  Receipt Date: 20240815
  Transmission Date: 20241017
  Serious: Yes (Other)
  Sender: BAXTER
  Company Number: None

PATIENT
  Age: 78 Year
  Sex: Male
  Weight: 50 kg

DRUGS (1)
  1. MANNITOL [Suspect]
     Active Substance: MANNITOL
     Indication: Diuretic therapy
     Dosage: 100 ML, ONCE DAILY (DOSAGE FORM: INJECTION)
     Route: 041
     Dates: start: 20240205, end: 20240205

REACTIONS (4)
  - Infusion related reaction [Unknown]
  - Temperature intolerance [Recovering/Resolving]
  - Chills [Recovering/Resolving]
  - Breath sounds abnormal [Unknown]

NARRATIVE: CASE EVENT DATE: 20240205
